FAERS Safety Report 5126887-5 (Version None)
Quarter: 2006Q4

REPORT INFORMATION
  Report Type: 
  Country: None (occurrence: None)
  Receive Date: 20061011
  Receipt Date: 20061011
  Transmission Date: 20070319
  Serious: Yes (Hospitalization)
  Sender: FDA-Public Use
  Company Number: None

PATIENT
  Sex: Male
  Weight: 73 kg

DRUGS (6)
  1. FLUDARABINE [Suspect]
     Indication: ACUTE LYMPHOCYTIC LEUKAEMIA
     Dosage: 57MG DAILY IV
     Route: 042
     Dates: start: 20060906, end: 20060910
  2. MELPHALAN [Suspect]
     Dosage: 266 MG TIMES ONE IV
     Route: 042
     Dates: start: 20060911, end: 20060911
  3. CAMPATH [Concomitant]
  4. PROGRAF [Concomitant]
  5. VALTREX [Concomitant]
  6. DILAUDID [Concomitant]

REACTIONS (7)
  - BACK PAIN [None]
  - BLOOD CULTURE POSITIVE [None]
  - CONSTIPATION [None]
  - HEPATIC ENZYME INCREASED [None]
  - INFECTION [None]
  - INTERVERTEBRAL DISCITIS [None]
  - OSTEOMYELITIS [None]
